FAERS Safety Report 21494961 (Version 1)
Quarter: 2022Q4

REPORT INFORMATION
  Report Type: Spontaneous
  Country: US (occurrence: US)
  Receive Date: 20221022
  Receipt Date: 20221022
  Transmission Date: 20230113
  Serious: No
  Sender: FDA-Public Use
  Company Number: US-CELLTRION INC.-2022US004501

PATIENT

DRUGS (1)
  1. INFLECTRA [Suspect]
     Active Substance: INFLIXIMAB-DYYB
     Indication: Product used for unknown indication
     Dosage: 521 MILLIGRAM (FREQUENCY: EVERY 8 WEEKS)/EVERY 8 WEEKS/100 MG/20 ML
     Route: 065

REACTIONS (2)
  - Product prescribing issue [Unknown]
  - Product preparation issue [Unknown]
